FAERS Safety Report 13990584 (Version 1)
Quarter: 2017Q3

REPORT INFORMATION
  Report Type: Spontaneous
  Country: AU (occurrence: AU)
  Receive Date: 20170920
  Receipt Date: 20170920
  Transmission Date: 20171128
  Serious: Yes (Disabling)
  Sender: FDA-Public Use
  Company Number: AU-GILEAD-2017-0293652

PATIENT
  Age: 36 Year
  Sex: Female

DRUGS (1)
  1. HARVONI [Suspect]
     Active Substance: LEDIPASVIR\SOFOSBUVIR
     Indication: PRODUCT USED FOR UNKNOWN INDICATION
     Dosage: UNK
     Route: 065
     Dates: start: 20170521

REACTIONS (4)
  - Pain in jaw [Unknown]
  - Hot flush [Unknown]
  - Toothache [Unknown]
  - Dizziness [Unknown]

NARRATIVE: CASE EVENT DATE: 20170521
